FAERS Safety Report 18285278 (Version 8)
Quarter: 2021Q1

REPORT INFORMATION
  Report Type: Spontaneous
  Country: US (occurrence: US)
  Receive Date: 20200918
  Receipt Date: 20210205
  Transmission Date: 20210419
  Serious: No
  Sender: FDA-Public Use
  Company Number: US-TEVA-2020-US-1829056

PATIENT
  Age: 54 Year
  Sex: Female

DRUGS (2)
  1. SYNRIBO [Suspect]
     Active Substance: OMACETAXINE MEPESUCCINATE
     Indication: CHRONIC MYELOID LEUKAEMIA
     Dosage: 2.8MG/0.8ML SUBQ:BID X 14 DAYS OF 28 DAY CYCLE; BID X 7 DAYS OF 28 CYCLE
     Route: 058
     Dates: start: 20200909
  2. ALLOPURINOL. [Concomitant]
     Active Substance: ALLOPURINOL
     Route: 065

REACTIONS (10)
  - Injection site pain [Unknown]
  - Injection site discolouration [Unknown]
  - Nausea [Unknown]
  - Full blood count decreased [Unknown]
  - Platelet count decreased [Not Recovered/Not Resolved]
  - Fatigue [Unknown]
  - Injection site erythema [Unknown]
  - Neutrophil count decreased [Recovered/Resolved]
  - Vomiting [Unknown]
  - Cough [Unknown]

NARRATIVE: CASE EVENT DATE: 2020
